FAERS Safety Report 4549979-8 (Version None)
Quarter: 2005Q1

REPORT INFORMATION
  Report Type: 
  Country: None (occurrence: None)
  Receive Date: 20050110
  Receipt Date: 20041227
  Transmission Date: 20050727
  Serious: Yes (Hospitalization)
  Sender: FDA-Public Use
  Company Number: 2004-05386

PATIENT
  Age: 67 Year
  Sex: Female

DRUGS (6)
  1. HYDROXYCHLOROQUINE SULFATE [Suspect]
     Dosage: 200 MG, BID, ORAL
     Route: 048
     Dates: start: 20020701
  2. ANAKINRA (ANAKINRA) [Suspect]
     Indication: RHEUMATOID ARTHRITIS
     Dosage: 100 MG, DAILY, SUBCUTANEOUS
     Route: 058
     Dates: start: 20020815
  3. ACETAMINOPHEN W/OXYCODONE (PARACETAMOL) [Concomitant]
  4. FUROSEMIDE [Concomitant]
  5. POTASSIUM CHLORIDE [Concomitant]
  6. INSULIN GLARGINE (INSULIN GLARGINE) [Concomitant]

REACTIONS (2)
  - HEPATIC STEATOSIS [None]
  - PANCREATITIS [None]
